FAERS Safety Report 6058986-8 (Version None)
Quarter: 2009Q1

REPORT INFORMATION
  Report Type: 
  Country: None (occurrence: None)
  Receive Date: 20090130
  Receipt Date: 20090123
  Transmission Date: 20090719
  Serious: Yes (Hospitalization)
  Sender: FDA-Public Use
  Company Number: A0765745A

PATIENT
  Age: 65 Year
  Sex: Male
  Weight: 88.6 kg

DRUGS (9)
  1. AVANDIA [Suspect]
     Route: 048
     Dates: start: 19990101, end: 20060401
  2. AVANDAMET [Suspect]
     Route: 048
     Dates: start: 20030611, end: 20070913
  3. GLUCOPHAGE [Concomitant]
  4. METFORMIN [Concomitant]
  5. INSULIN [Concomitant]
  6. AMARYL [Concomitant]
  7. TOPROL-XL [Concomitant]
  8. PREDNISONE TAB [Concomitant]
  9. VIOXX [Concomitant]

REACTIONS (3)
  - CORONARY ARTERY DISEASE [None]
  - HEART INJURY [None]
  - MYOCARDIAL INFARCTION [None]
